FAERS Safety Report 16012532 (Version 1)
Quarter: 2019Q1

REPORT INFORMATION
  Report Type: Report from Study
  Country: US (occurrence: US)
  Receive Date: 20190227
  Receipt Date: 20190227
  Transmission Date: 20190418
  Serious: No
  Sender: FDA-Public Use
  Company Number: US-DOVA PHARMACEUTICALS INC.-DOV-000234

PATIENT
  Sex: Male

DRUGS (1)
  1. DOPTELET [Suspect]
     Active Substance: AVATROMBOPAG MALEATE
     Indication: WHITE BLOOD CELL COUNT DECREASED
     Dosage: 60 MG, QD
     Route: 048
     Dates: start: 20190103, end: 20190107

REACTIONS (2)
  - Abdominal discomfort [Unknown]
  - Headache [Unknown]
